FAERS Safety Report 9886076 (Version 2)
Quarter: 2014Q1

REPORT INFORMATION
  Report Type: Spontaneous
  Country: IT (occurrence: IT)
  Receive Date: 20140210
  Receipt Date: 20140213
  Transmission Date: 20141002
  Serious: Yes (Other)
  Sender: FDA-Public Use
  Company Number: IT-PFIZER INC-2014029459

PATIENT
  Age: 67 Year
  Sex: Male

DRUGS (7)
  1. PANTOPRAZOLE [Suspect]
     Dosage: 40 MG, DAILY (STARTED TWO YEARS AGO)
  2. CARDIOASPIRIN [Concomitant]
     Dosage: UNK
  3. METFORMIN [Concomitant]
     Dosage: UNK
  4. RAMIPRIL [Concomitant]
     Dosage: UNK
  5. ATORVASTATIN [Concomitant]
     Dosage: UNK
  6. POTASSIUM [Concomitant]
     Dosage: UNK
  7. CALCIUM [Concomitant]
     Dosage: UNK

REACTIONS (3)
  - Ataxia [Recovered/Resolved]
  - Hypomagnesaemia [Recovered/Resolved]
  - Malabsorption [Recovered/Resolved]
